APPROVED DRUG PRODUCT: NIFEDIPINE
Active Ingredient: NIFEDIPINE
Strength: 30MG
Dosage Form/Route: TABLET, EXTENDED RELEASE;ORAL
Application: A210184 | Product #001 | TE Code: AB1
Applicant: ZYDUS PHARMACEUTICALS USA INC
Approved: Jun 29, 2018 | RLD: No | RS: No | Type: RX